FAERS Safety Report 13485865 (Version 1)
Quarter: 2017Q2

REPORT INFORMATION
  Report Type: Spontaneous
  Country: DE (occurrence: DE)
  Receive Date: 20170426
  Receipt Date: 20170426
  Transmission Date: 20170830
  Serious: Yes (Congenital Anomaly)
  Sender: FDA-Public Use
  Company Number: DE-BIOGEN-2017BI00390699

PATIENT
  Sex: Male

DRUGS (2)
  1. TYSABRI [Suspect]
     Active Substance: NATALIZUMAB
     Indication: MATERNAL EXPOSURE TIMING UNSPECIFIED
     Dosage: INFUSED OVER 1HR
     Route: 064
     Dates: start: 201411, end: 2016
  2. TYSABRI [Suspect]
     Active Substance: NATALIZUMAB
     Dosage: INFUSED OVER 1HR
     Route: 064
     Dates: start: 20170117

REACTIONS (2)
  - Adactyly [Not Recovered/Not Resolved]
  - Foetal exposure timing unspecified [Unknown]
